FAERS Safety Report 12340385 (Version 3)
Quarter: 2016Q3

REPORT INFORMATION
  Report Type: Report from Study
  Country: US (occurrence: US)
  Receive Date: 20160506
  Receipt Date: 20160712
  Transmission Date: 20161109
  Serious: Yes (Hospitalization)
  Sender: FDA-Public Use
  Company Number: US-GILEAD-2016-0211742

PATIENT
  Age: 43 Year
  Sex: Female

DRUGS (5)
  1. ADCIRCA [Concomitant]
     Active Substance: TADALAFIL
  2. SERTRALINE [Concomitant]
     Active Substance: SERTRALINE HYDROCHLORIDE
  3. AMBRISENTAN [Suspect]
     Active Substance: AMBRISENTAN
     Indication: PULMONARY HYPERTENSION
     Dosage: 5 MG, QD
     Route: 065
     Dates: start: 20151209
  4. SPIRONOLACTONE. [Concomitant]
     Active Substance: SPIRONOLACTONE
  5. TORSEMIDE. [Concomitant]
     Active Substance: TORSEMIDE

REACTIONS (8)
  - Malaise [Not Recovered/Not Resolved]
  - Abdominal pain [Unknown]
  - Dizziness [Unknown]
  - Blood potassium decreased [Unknown]
  - Dyspnoea [Recovered/Resolved]
  - Drug dose omission [Unknown]
  - Movement disorder [Unknown]
  - Palpitations [Unknown]

NARRATIVE: CASE EVENT DATE: 20160410
